FAERS Safety Report 6943700-1 (Version None)
Quarter: 2010Q3

REPORT INFORMATION
  Report Type: 
  Country: None (occurrence: None)
  Receive Date: 20100826
  Receipt Date: 20100818
  Transmission Date: 20110219
  Serious: Yes (Hospitalization)
  Sender: FDA-Public Use
  Company Number: A0766206A

PATIENT
  Age: 53 Year
  Sex: Female

DRUGS (2)
  1. AVANDAMET [Suspect]
     Dosage: 4MG PER DAY
     Route: 048
     Dates: start: 20050909, end: 20051226
  2. AVANDIA [Suspect]
     Dosage: 4MG PER DAY
     Route: 048
     Dates: start: 20051227, end: 20070524

REACTIONS (4)
  - CARDIAC DISORDER [None]
  - DIABETIC COMPLICATION [None]
  - HAEMORRHAGIC DIATHESIS [None]
  - MYOCARDIAL INFARCTION [None]
